FAERS Safety Report 25468075 (Version 1)
Quarter: 2025Q2

REPORT INFORMATION
  Report Type: Spontaneous
  Country: US (occurrence: None)
  Receive Date: 20250620
  Receipt Date: 20250620
  Transmission Date: 20250717
  Serious: Yes (Life-Threatening, Disabling, Other)
  Sender: FDA-CTU
  Company Number: None

PATIENT
  Age: 65 Year
  Sex: Female
  Weight: 75.6 kg

DRUGS (1)
  1. REXULTI [Suspect]
     Active Substance: BREXPIPRAZOLE
     Indication: Depression
     Dosage: FREQUENCY : DAILY;?
     Route: 048
     Dates: start: 20240601, end: 20240725

REACTIONS (8)
  - Depersonalisation/derealisation disorder [None]
  - Dissociation [None]
  - Anhedonia [None]
  - Asthenia [None]
  - Loss of personal independence in daily activities [None]
  - Withdrawal syndrome [None]
  - Impaired work ability [None]
  - Loss of employment [None]

NARRATIVE: CASE EVENT DATE: 20240819
